FAERS Safety Report 13965188 (Version 1)
Quarter: 2017Q3

REPORT INFORMATION
  Report Type: Spontaneous
  Country: PE (occurrence: PE)
  Receive Date: 20170913
  Receipt Date: 20170913
  Transmission Date: 20171128
  Serious: Yes (Death, Hospitalization)
  Sender: FDA-Public Use
  Company Number: PE-BAYER-2017-174605

PATIENT
  Age: 32 Year
  Sex: Male

DRUGS (5)
  1. CIPROFLOXACIN BETAIN [Suspect]
     Active Substance: CIPROFLOXACIN
     Dosage: 400 MG, BID
     Route: 041
  2. LAMIVUDINE. [Concomitant]
     Active Substance: LAMIVUDINE
  3. NITAZOXANIDE [Concomitant]
     Active Substance: NITAZOXANIDE
     Dosage: 500 MG, TID
  4. NEVIRAPINE. [Concomitant]
     Active Substance: NEVIRAPINE
     Dosage: UNK
  5. ZIDOVUDINA PROTEIN [Concomitant]
     Dosage: UNK

REACTIONS (1)
  - Drug ineffective [Fatal]
